FAERS Safety Report 5287724-1 (Version None)
Quarter: 2007Q1

REPORT INFORMATION
  Report Type: 
  Country: None (occurrence: None)
  Receive Date: 20070116
  Receipt Date: 20060914
  Transmission Date: 20070707
  Serious: No
  Sender: FDA-Public Use
  Company Number: 2006SP003287

PATIENT
  Sex: Male
  Weight: 70.3075 kg

DRUGS (5)
  1. LUNESTA [Suspect]
     Indication: INSOMNIA
     Dosage: SEE IMAGE
     Route: 048
     Dates: start: 20060101, end: 20060101
  2. LUNESTA [Suspect]
     Indication: INSOMNIA
     Dosage: SEE IMAGE
     Route: 048
     Dates: start: 20060201, end: 20060913
  3. VALSARTAN [Concomitant]
  4. ALTACE [Concomitant]
  5. ZYRTEC [Concomitant]

REACTIONS (4)
  - ANXIETY [None]
  - INSOMNIA [None]
  - PANIC ATTACK [None]
  - TINNITUS [None]
